FAERS Safety Report 24390420 (Version 1)
Quarter: 2024Q4

REPORT INFORMATION
  Report Type: Other
  Country: FR (occurrence: FR)
  Receive Date: 20241003
  Receipt Date: 20241003
  Transmission Date: 20250114
  Serious: Yes (Life-Threatening)
  Sender: ZYDUS PHARM
  Company Number: None

PATIENT

DRUGS (4)
  1. ACETAMINOPHEN [Suspect]
     Active Substance: ACETAMINOPHEN
     Indication: Intentional overdose
     Dosage: 16 GRAM, 1 TOTAL
     Route: 048
     Dates: start: 20240820, end: 20240820
  2. PAROXETINE [Suspect]
     Active Substance: PAROXETINE
     Indication: Intentional overdose
     Dosage: 560 MILLIGRAM, 1 TOTAL
     Route: 048
     Dates: start: 20240820, end: 20240820
  3. BROMAZEPAM [Suspect]
     Active Substance: BROMAZEPAM
     Indication: Intentional overdose
     Dosage: 540 MILLIGRAM, 1 TOTAL
     Route: 048
     Dates: start: 20240820, end: 20240820
  4. TRIMEPRAZINE [Suspect]
     Active Substance: TRIMEPRAZINE
     Indication: Intentional overdose
     Dosage: 40 MILLILITER, 1 TOTAL
     Route: 048
     Dates: start: 20240820, end: 20240820

REACTIONS (6)
  - Haemodynamic instability [Not Recovered/Not Resolved]
  - Respiratory failure [Not Recovered/Not Resolved]
  - Pneumonia aspiration [Not Recovered/Not Resolved]
  - Nervous system disorder [Not Recovered/Not Resolved]
  - Acute kidney injury [Recovered/Resolved]
  - Poisoning deliberate [Recovered/Resolved]

NARRATIVE: CASE EVENT DATE: 20240820
